FAERS Safety Report 20959642 (Version 1)
Quarter: 2022Q2

REPORT INFORMATION
  Report Type: Spontaneous
  Country: None (occurrence: US)
  Receive Date: 20220614
  Receipt Date: 20220614
  Transmission Date: 20220721
  Serious: Yes (Other)
  Sender: FDA-Public Use
  Company Number: US-Edgewell Personal Care, LLC-2129880

PATIENT
  Age: 12 Month
  Sex: Female

DRUGS (1)
  1. BANANA BOAT (AVOBENZONE\HOMOSALATE\OCTISALATE\OCTOCRYLENE) [Suspect]
     Active Substance: AVOBENZONE\HOMOSALATE\OCTISALATE\OCTOCRYLENE
     Indication: Prophylaxis against solar radiation
     Route: 061
     Dates: start: 20220529, end: 20220529

REACTIONS (2)
  - Second degree chemical burn of skin [Not Recovered/Not Resolved]
  - Eye swelling [Not Recovered/Not Resolved]

NARRATIVE: CASE EVENT DATE: 20220529
